FAERS Safety Report 8197701-9 (Version None)
Quarter: 2012Q1

REPORT INFORMATION
  Report Type: 
  Country: None (occurrence: None)
  Receive Date: 20120309
  Receipt Date: 20120301
  Transmission Date: 20120608
  Serious: Yes (Hospitalization)
  Sender: FDA-Public Use
  Company Number: US-TEVA-326341USA

PATIENT
  Sex: Male
  Weight: 79.24 kg

DRUGS (3)
  1. TREANDA [Suspect]
     Indication: B-CELL LYMPHOMA
     Route: 042
     Dates: start: 20111215
  2. PREDNISONE [Suspect]
     Indication: B-CELL LYMPHOMA
     Route: 048
  3. OBINUTUZUMAB [Suspect]
     Route: 042
     Dates: start: 20111215

REACTIONS (5)
  - SEPSIS [None]
  - HYPOTENSION [None]
  - ALANINE AMINOTRANSFERASE INCREASED [None]
  - TACHYCARDIA [None]
  - PYREXIA [None]
